FAERS Safety Report 6284440-4 (Version None)
Quarter: 2009Q3

REPORT INFORMATION
  Report Type: 
  Country: None (occurrence: None)
  Receive Date: 20090727
  Receipt Date: 20090624
  Transmission Date: 20100115
  Serious: Yes (Hospitalization)
  Sender: FDA-Public Use
  Company Number: RU-EISAI INC.-E2090-00757-CLI-RU

PATIENT
  Sex: Female
  Weight: 54 kg

DRUGS (2)
  1. E2090/CARBAMAZEPINE [Suspect]
     Indication: EPILEPSY
     Dosage: DOUBLE-BLIND
     Route: 048
     Dates: start: 20090514, end: 20090526
  2. E2090/CARBAMAZEPINE [Suspect]
     Dosage: DOUBLE-BLIND
     Route: 048
     Dates: start: 20090527, end: 20090605

REACTIONS (1)
  - RASH [None]
